FAERS Safety Report 9289585 (Version 3)
Quarter: 2013Q2

REPORT INFORMATION
  Report Type: Spontaneous
  Country: US (occurrence: US)
  Receive Date: 20130515
  Receipt Date: 20130607
  Transmission Date: 20140414
  Serious: Yes (Other)
  Sender: FDA-Public Use
  Company Number: US-ROCHE-724895

PATIENT
  Age: 21 Year
  Sex: Female
  Weight: 57.2 kg

DRUGS (2)
  1. ACCUTANE [Suspect]
     Indication: ACNE
     Route: 065
     Dates: start: 199505, end: 199510
  2. ACCUTANE [Suspect]
     Route: 065
     Dates: start: 199702, end: 199703

REACTIONS (7)
  - Colitis ulcerative [Unknown]
  - Emotional distress [Unknown]
  - Depression [Unknown]
  - Inflammatory bowel disease [Unknown]
  - Large intestine polyp [Unknown]
  - Irritable bowel syndrome [Unknown]
  - Urinary tract infection [Unknown]
